FAERS Safety Report 8887605 (Version 1)
Quarter: 2012Q4

REPORT INFORMATION
  Report Type: Spontaneous
  Country: US (occurrence: None)
  Receive Date: 20121101
  Receipt Date: 20121101
  Transmission Date: 20130627
  Serious: Yes (Other)
  Sender: FDA-Public Use
  Company Number: None

PATIENT
  Age: 46 Year
  Sex: Female
  Weight: 74.84 kg

DRUGS (1)
  1. CEPHALEXIN [Suspect]
     Indication: BACTERIAL INFECTION
     Dates: start: 20121016, end: 20121021

REACTIONS (6)
  - Urticaria [None]
  - Pruritus [None]
  - Fatigue [None]
  - Headache [None]
  - Abdominal discomfort [None]
  - Rash pruritic [None]
